FAERS Safety Report 5765131-2 (Version None)
Quarter: 2008Q2

REPORT INFORMATION
  Report Type: 
  Country: None (occurrence: None)
  Receive Date: 20080611
  Receipt Date: 20080605
  Transmission Date: 20081010
  Serious: Yes (Other)
  Sender: FDA-Public Use
  Company Number: US-JNJFOC-20080601766

PATIENT
  Sex: Male
  Weight: 15.42 kg

DRUGS (2)
  1. CONCERTA [Suspect]
     Indication: ATTENTION DEFICIT/HYPERACTIVITY DISORDER
     Route: 048
  2. CLONIDINE [Concomitant]
     Indication: SLEEP DISORDER
     Dosage: DOSE : 1MG/U  START DATE : UNKNOWN

REACTIONS (3)
  - AFFECT LABILITY [None]
  - HALLUCINATION [None]
  - INTENTIONAL SELF-INJURY [None]
